FAERS Safety Report 22375042 (Version 2)
Quarter: 2023Q2

REPORT INFORMATION
  Report Type: Spontaneous
  Country: IT (occurrence: IT)
  Receive Date: 20230527
  Receipt Date: 20230605
  Transmission Date: 20230721
  Serious: Yes (Other)
  Sender: FDA-Public Use
  Company Number: None

PATIENT
  Age: 56 Year
  Sex: Female
  Weight: 70 kg

DRUGS (2)
  1. ELTROMBOPAG OLAMINE [Suspect]
     Active Substance: ELTROMBOPAG OLAMINE
     Indication: Thrombocytopenia
     Dosage: 50 MG
     Route: 065
     Dates: start: 20220228, end: 20220830
  2. PREDNISONE [Concomitant]
     Active Substance: PREDNISONE
     Indication: Thrombocytopenia
     Dosage: UNK
     Route: 065
     Dates: start: 20211109, end: 20220430

REACTIONS (6)
  - Hyperglycaemia [Recovered/Resolved with Sequelae]
  - Insomnia [Recovered/Resolved]
  - Nausea [Recovered/Resolved]
  - Lipase increased [Recovered/Resolved]
  - Headache [Recovered/Resolved]
  - Amylase increased [Recovered/Resolved]

NARRATIVE: CASE EVENT DATE: 20220330
